FAERS Safety Report 17335060 (Version 2)
Quarter: 2020Q1

REPORT INFORMATION
  Report Type: Spontaneous
  Country: JP (occurrence: JP)
  Receive Date: 20200128
  Receipt Date: 20200212
  Transmission Date: 20200409
  Serious: Yes (Death, Hospitalization, Other)
  Sender: FDA-Public Use
  Company Number: JP-AMGEN-JPNSP2020013546

PATIENT
  Age: 88 Year
  Sex: Male

DRUGS (1)
  1. EVENITY [Suspect]
     Active Substance: ROMOSOZUMAB-AQQG
     Indication: OSTEOPOROSIS
     Dosage: 210 MILLIGRAM
     Route: 058
     Dates: start: 20191018, end: 20191218

REACTIONS (4)
  - Unevaluable event [Unknown]
  - Fall [Unknown]
  - Death [Fatal]
  - Femur fracture [Unknown]

NARRATIVE: CASE EVENT DATE: 201910
